FAERS Safety Report 12201572 (Version 1)
Quarter: 2016Q1

REPORT INFORMATION
  Report Type: Spontaneous
  Country: US (occurrence: US)
  Receive Date: 20160322
  Receipt Date: 20160322
  Transmission Date: 20160526
  Serious: No
  Sender: FDA-Public Use
  Company Number: US-SA-2015SA106163

PATIENT
  Age: 69 Year
  Sex: Male

DRUGS (2)
  1. AMOXICILLIN. [Concomitant]
     Active Substance: AMOXICILLIN
     Route: 065
  2. NASACORT ALLERGY 24HR [Suspect]
     Active Substance: TRIAMCINOLONE ACETONIDE
     Indication: INFECTION
     Dosage: PRODUCT START DATE: 2 DAYS AGO MID-MORNING AT 10AM.
     Route: 065

REACTIONS (1)
  - Therapeutic response decreased [Unknown]
